FAERS Safety Report 4765780-4 (Version None)
Quarter: 2005Q3

REPORT INFORMATION
  Report Type: 
  Country: None (occurrence: None)
  Receive Date: 20050906
  Receipt Date: 20050831
  Transmission Date: 20060218
  Serious: Yes (Hospitalization)
  Sender: FDA-Public Use
  Company Number: 2005FR-00276

PATIENT
  Sex: Male
  Weight: 1 kg

DRUGS (4)
  1. CLINDAMYCIN [Suspect]
     Indication: STAPHYLOCOCCAL SEPSIS
     Dosage: INTRAVENOUS
     Route: 042
  2. FLUCLOXACILLIN [Concomitant]
  3. VANCOMYCIN [Concomitant]
  4. CUROSURF [Concomitant]

REACTIONS (3)
  - CHEST DISCOMFORT [None]
  - MEDICATION ERROR [None]
  - OXYGEN SATURATION DECREASED [None]
